FAERS Safety Report 20501415 (Version 3)
Quarter: 2022Q3

REPORT INFORMATION
  Report Type: Report from Study
  Country: US (occurrence: US)
  Receive Date: 20220222
  Receipt Date: 20220930
  Transmission Date: 20221027
  Serious: Yes (Other)
  Sender: FDA-Public Use
  Company Number: US-BAYER-2022A014443

PATIENT
  Age: 60 Year
  Sex: Male

DRUGS (10)
  1. NEXAVAR [Suspect]
     Active Substance: SORAFENIB
     Indication: Hepatocellular carcinoma
     Dosage: UNK
  2. NEXAVAR [Suspect]
     Active Substance: SORAFENIB
     Indication: Connective tissue neoplasm
     Dosage: DAILY DOSE 400 MG
     Route: 048
     Dates: start: 20220113
  3. NEXAVAR [Suspect]
     Active Substance: SORAFENIB
     Indication: Soft tissue neoplasm
     Dosage: DAILY DOSE 400 MG
     Route: 048
     Dates: start: 20220305, end: 20220405
  4. NEXAVAR [Suspect]
     Active Substance: SORAFENIB
     Indication: Desmoid tumour
  5. AMLODIPINE BESYLATE [Concomitant]
     Active Substance: AMLODIPINE BESYLATE
     Dosage: 10 MG, QD
     Route: 048
     Dates: start: 20220303, end: 20220524
  6. AMLODIPINE [Concomitant]
     Active Substance: AMLODIPINE BESYLATE
     Indication: Hypertension
     Dosage: 5 MG
     Dates: start: 20220309, end: 20220524
  7. B COMPLETE [VITAMIN B COMPLEX] [Concomitant]
     Dosage: 1 CAP DAILY
     Route: 048
  8. ONDANSETRON [Concomitant]
     Active Substance: ONDANSETRON
     Indication: Nausea
     Dosage: 1 TAB AFTER EVERY 8 HRS
  9. ONDANSETRON [Concomitant]
     Active Substance: ONDANSETRON
     Indication: Vomiting
  10. PROCHLORPERAZINE [Concomitant]
     Active Substance: PROCHLORPERAZINE
     Dosage: 1 TAB EVERY 6 HRS
     Route: 048

REACTIONS (9)
  - Dizziness postural [Recovered/Resolved]
  - Hypertension [Recovered/Resolved]
  - Tumour pain [Recovered/Resolved]
  - Fatigue [Not Recovered/Not Resolved]
  - Hypertension [Recovered/Resolved]
  - Dry skin [Not Recovered/Not Resolved]
  - Mobility decreased [Recovered/Resolved]
  - Aspartate aminotransferase increased [Recovered/Resolved]
  - Alanine aminotransferase increased [Recovered/Resolved]

NARRATIVE: CASE EVENT DATE: 20201201
